FAERS Safety Report 23460319 (Version 2)
Quarter: 2024Q2

REPORT INFORMATION
  Report Type: Report from Study
  Country: IT (occurrence: IT)
  Receive Date: 20240131
  Receipt Date: 20240613
  Transmission Date: 20240716
  Serious: Yes (Other)
  Sender: FDA-Public Use
  Company Number: IT-SUN PHARMACEUTICAL INDUSTRIES LTD-2024RR-428675

PATIENT
  Age: 82 Year
  Sex: Female
  Weight: 64 kg

DRUGS (2)
  1. RIVAROXABAN [Interacting]
     Active Substance: RIVAROXABAN
     Indication: Idiopathic generalised epilepsy
     Dosage: UNK
     Route: 065
  2. VALPROIC ACID [Interacting]
     Active Substance: VALPROIC ACID
     Indication: Idiopathic generalised epilepsy
     Dosage: UNK
     Route: 065

REACTIONS (1)
  - Drug interaction [Unknown]
